FAERS Safety Report 16794440 (Version 2)
Quarter: 2019Q3

REPORT INFORMATION
  Report Type: Report from Study
  Country: BR (occurrence: BR)
  Receive Date: 20190911
  Receipt Date: 20190918
  Transmission Date: 20191005
  Serious: Yes (Hospitalization, Other)
  Sender: FDA-Public Use
  Company Number: PHHY2019BR196804

PATIENT
  Age: 47 Year
  Sex: Male

DRUGS (2)
  1. VOTRIENT [Suspect]
     Active Substance: PAZOPANIB HYDROCHLORIDE
     Indication: RENAL CANCER
     Dosage: 2 DF, QD
     Route: 048
     Dates: start: 20190808
  2. RANITIDINE. [Suspect]
     Active Substance: RANITIDINE
     Indication: PRODUCT USED FOR UNKNOWN INDICATION
     Route: 065

REACTIONS (9)
  - Blood sodium decreased [Recovering/Resolving]
  - Malaise [Unknown]
  - Hypertension [Recovering/Resolving]
  - Thinking abnormal [Recovered/Resolved]
  - Pain [Recovered/Resolved]
  - Delusion [Unknown]
  - Feeling abnormal [Recovered/Resolved]
  - Movement disorder [Recovering/Resolving]
  - Back pain [Unknown]

NARRATIVE: CASE EVENT DATE: 20190815
